FAERS Safety Report 20467134 (Version 1)
Quarter: 2022Q1

REPORT INFORMATION
  Report Type: Spontaneous
  Country: TR (occurrence: TR)
  Receive Date: 20220214
  Receipt Date: 20220214
  Transmission Date: 20220423
  Serious: Yes (Other)
  Sender: FDA-Public Use
  Company Number: TR-PFIZER INC-202200186075

PATIENT
  Age: 47 Year
  Sex: Male

DRUGS (2)
  1. ENBREL [Suspect]
     Active Substance: ETANERCEPT
     Indication: Product used for unknown indication
     Dosage: 50 MG, WEEKLY FOR THE LAST 6 MONTHS
     Route: 065
  2. COLCHICINE [Concomitant]
     Active Substance: COLCHICINE
     Dosage: 1.2 MG, DAILY FOR ABOUT 12 YEARS

REACTIONS (1)
  - Hidradenitis [Recovering/Resolving]
